FAERS Safety Report 7275352-8 (Version None)
Quarter: 2011Q1

REPORT INFORMATION
  Report Type: 
  Country: None (occurrence: None)
  Receive Date: 20110204
  Receipt Date: 20101215
  Transmission Date: 20110831
  Serious: Yes (Hospitalization, Other)
  Sender: FDA-Public Use
  Company Number: US-BAYER-201030410NA

PATIENT
  Sex: Female
  Weight: 110 kg

DRUGS (3)
  1. DARVOCET-N 100 [Concomitant]
     Indication: PELVIC PAIN
     Dosage: UNK
     Dates: start: 20080219
  2. YASMIN [Suspect]
  3. YAZ [Suspect]
     Indication: PRODUCT USED FOR UNKNOWN INDICATION
     Dosage: UNK
     Dates: start: 20080201, end: 20080221

REACTIONS (10)
  - SPLENOMEGALY [None]
  - TROPONIN INCREASED [None]
  - CHOLELITHIASIS [None]
  - FIBRIN D DIMER INCREASED [None]
  - BLOOD GLUCOSE INCREASED [None]
  - CHOLECYSTITIS ACUTE [None]
  - CHEST PAIN [None]
  - PAIN [None]
  - MIGRAINE [None]
  - DYSPNOEA [None]
